FAERS Safety Report 25998150 (Version 1)
Quarter: 2025Q4

REPORT INFORMATION
  Report Type: Spontaneous
  Country: EU (occurrence: EU)
  Receive Date: 20251105
  Receipt Date: 20251105
  Transmission Date: 20260117
  Serious: Yes (Hospitalization, Other)
  Sender: BRISTOL-MYERS SQUIBB COMPANY
  Company Number: EU-ROCHE-10000341256

PATIENT
  Age: 53 Year
  Sex: Female
  Weight: 61 kg

DRUGS (12)
  1. PACLITAXEL [Suspect]
     Active Substance: PACLITAXEL
     Indication: Triple negative breast cancer
     Dosage: LAST DOSE ADMINISTERED BEFORE SAE 26-JUN-2025, 180 MG, C1D1
     Route: 042
     Dates: start: 20250327, end: 20250626
  2. TIRAGOLUMAB [Suspect]
     Active Substance: TIRAGOLUMAB
     Indication: Triple negative breast cancer
     Dosage: LAST DOSE ADMINISTERED BEFORE SAE 03-JUL-2025, 1200 MG C1D1
     Route: 042
     Dates: start: 20250327, end: 20250703
  3. TIRAGOLUMAB [Suspect]
     Active Substance: TIRAGOLUMAB
     Dosage: LAST DOSE ADMINISTERED BEFORE SAE 04-SEP-2025, 600 MG, C1D1
     Route: 042
  4. ATEZOLIZUMAB [Suspect]
     Active Substance: ATEZOLIZUMAB
     Indication: Triple negative breast cancer
     Dosage: LAST DOSE ADMINISTERED BEFORE SAE 03-JUL-2025, 600 MG, C1D1
     Route: 042
     Dates: start: 20250327, end: 20250703
  5. ATEZOLIZUMAB [Suspect]
     Active Substance: ATEZOLIZUMAB
     Dosage: LAST DOSE ADMINISTERED BEFORE SAE 04-SEP-2025, 1200 MG, C1D1
     Route: 042
  6. CARBOPLATIN [Suspect]
     Active Substance: CARBOPLATIN
     Indication: Triple negative breast cancer
     Dosage: LAST DOSE ADMINISTERED BEFORE SAE 13-JUN-2025, 366 MG, C1D1
     Route: 042
     Dates: start: 20250327, end: 20250613
  7. DOXORUBICIN [Suspect]
     Active Substance: DOXORUBICIN
     Indication: Triple negative breast cancer
     Dosage: LAST DOSE ADMINISTERED BEFORE SAE, 03-JUL-2025 C5D1
     Route: 042
     Dates: start: 20250703, end: 20250703
  8. DOXORUBICIN [Suspect]
     Active Substance: DOXORUBICIN
     Dosage: LAST DOSE ADMINISTERED BEFORE SAE 04-SEP-2025, 75 MG, C1D1
     Route: 042
  9. CYCLOPHOSPHAMIDE [Suspect]
     Active Substance: CYCLOPHOSPHAMIDE
     Indication: Triple negative breast cancer
     Dosage: LAST DOSE ADMINISTERED BEFORE SAE, 03-JUL-2025 C5D1
     Route: 042
     Dates: start: 20250703, end: 20250703
  10. CYCLOPHOSPHAMIDE [Suspect]
     Active Substance: CYCLOPHOSPHAMIDE
     Dosage: LAST DOSE ADMINISTERED BEFORE SAE 04-SEP-2025, 75 0 MG, C1D1
     Route: 042
  11. PEGFILGRASTIM [Concomitant]
     Active Substance: PEGFILGRASTIM
     Indication: Product used for unknown indication
     Route: 058
     Dates: start: 20250704, end: 20250704
  12. AMOXICILLIN [AMOXICILLIN TRIHYDRATE;CLAVULANATE POTASSIUM] [Concomitant]
     Indication: Sialoadenitis
     Route: 048

REACTIONS (2)
  - Febrile neutropenia [Recovered/Resolved]
  - Immune-mediated myocarditis [Not Recovered/Not Resolved]

NARRATIVE: CASE EVENT DATE: 20250712
